FAERS Safety Report 9065626 (Version 1)
Quarter: 2013Q1

REPORT INFORMATION
  Report Type: Report from Study
  Country: US (occurrence: US)
  Receive Date: 20130130
  Receipt Date: 20130130
  Transmission Date: 20140127
  Serious: No
  Sender: FDA-Public Use
  Company Number: US-ABBOTT-12P-163-0974955-00

PATIENT
  Age: 39 Year
  Sex: Female

DRUGS (4)
  1. HUMIRA [Suspect]
     Indication: RHEUMATOID ARTHRITIS
     Route: 058
     Dates: start: 20120719
  2. ZOLOFT [Concomitant]
     Indication: ANXIETY
     Dates: start: 20120724
  3. VITAMIN B-12 [Concomitant]
     Indication: FATIGUE
     Route: 050
  4. ORTHO NOVUM [Concomitant]
     Indication: CONTRACEPTION

REACTIONS (4)
  - Nasal congestion [Recovering/Resolving]
  - Nasal congestion [Recovering/Resolving]
  - Cough [Recovering/Resolving]
  - Nasopharyngitis [Unknown]
